FAERS Safety Report 5194334-3 (Version None)
Quarter: 2006Q4

REPORT INFORMATION
  Report Type: 
  Country: None (occurrence: None)
  Receive Date: 20061228
  Receipt Date: 20060120
  Transmission Date: 20070319
  Serious: Yes (Other)
  Sender: FDA-Public Use
  Company Number: US-SHR-US-2006-001114

PATIENT
  Age: 23 Year
  Sex: Female
  Weight: 48.526 kg

DRUGS (2)
  1. BETASERON [Suspect]
     Dosage: 8 MIU, EVERY 2D
     Route: 058
     Dates: start: 20050406, end: 20060111
  2. EXEDRIN OR ALIEVE OCCASIONALLY [Concomitant]

REACTIONS (14)
  - ABDOMINAL PAIN [None]
  - CONSTIPATION [None]
  - DRUG EXPOSURE DURING PREGNANCY [None]
  - HEADACHE [None]
  - METRORRHAGIA [None]
  - NAUSEA [None]
  - OLIGOHYDRAMNIOS [None]
  - PAIN [None]
  - PAIN IN EXTREMITY [None]
  - PREGNANCY [None]
  - PREMATURE LABOUR [None]
  - RED BLOOD CELL SICKLED CELLS PRESENT [None]
  - VAGINAL HAEMORRHAGE [None]
  - VOMITING [None]
